FAERS Safety Report 4635276-9 (Version None)
Quarter: 2005Q2

REPORT INFORMATION
  Report Type: 
  Country: None (occurrence: None)
  Receive Date: 20050411
  Receipt Date: 20050329
  Transmission Date: 20051028
  Serious: Yes (Hospitalization, Other)
  Sender: FDA-Public Use
  Company Number: 2005025375

PATIENT
  Age: 50 Year
  Sex: Female
  Weight: 73.4827 kg

DRUGS (8)
  1. CELEBREX [Suspect]
     Indication: ARTHRALGIA
     Dosage: 200 MG (200 MG, 1 IN 1 D) , ORAL
     Route: 048
     Dates: start: 20041027, end: 20041221
  2. CELEBREX [Suspect]
     Indication: FIBROMYALGIA
     Dosage: 200 MG (200 MG, 1 IN 1 D) , ORAL
     Route: 048
     Dates: start: 20041027, end: 20041221
  3. ROFECOXIB [Suspect]
     Indication: ILL-DEFINED DISORDER
  4. PANTOPRAZOLE (PANTOPRAZOLE) [Concomitant]
  5. METOPROLOL TARTRATE [Concomitant]
  6. IRBESARTAN (IRBASRTAN) [Concomitant]
  7. HYDROCHLOROTHIAZIDE [Concomitant]
  8. LORATADINE [Concomitant]

REACTIONS (16)
  - ABDOMINAL DISTENSION [None]
  - ABDOMINAL PAIN [None]
  - ANXIETY [None]
  - CONDITION AGGRAVATED [None]
  - DIARRHOEA [None]
  - FIBROMYALGIA [None]
  - GASTRIC DISORDER [None]
  - GASTRIC HAEMORRHAGE [None]
  - GASTRIC ULCER [None]
  - GASTRITIS [None]
  - GASTROINTESTINAL HAEMORRHAGE [None]
  - MALAISE [None]
  - MUSCLE SPASMS [None]
  - NAUSEA [None]
  - OESOPHAGEAL HAEMORRHAGE [None]
  - TRANSIENT ISCHAEMIC ATTACK [None]
